FAERS Safety Report 8840889 (Version 1)
Quarter: 2012Q4

REPORT INFORMATION
  Report Type: 
  Country: IT (occurrence: IT)
  Receive Date: 20121015
  Receipt Date: 20121015
  Transmission Date: 20130627
  Serious: Yes (Hospitalization)
  Sender: FDA-Public Use
  Company Number: PHHO2012IT014876

PATIENT
  Age: 72 Year
  Sex: Male

DRUGS (2)
  1. CERTICAN [Suspect]
     Indication: RENAL TRANSPLANT
     Dosage: 0.75 mg, BID
     Dates: start: 20120907
  2. NEORAL [Suspect]
     Indication: RENAL TRANSPLANT
     Dosage: 5.0 mg, BID
     Dates: start: 20120924

REACTIONS (1)
  - Pelvic fluid collection [Unknown]
